FAERS Safety Report 7941285-4 (Version None)
Quarter: 2011Q4

REPORT INFORMATION
  Report Type: 
  Country: None (occurrence: None)
  Receive Date: 20111122
  Receipt Date: 20111122
  Transmission Date: 20120403
  Serious: Yes (Death)
  Sender: FDA-Public Use
  Company Number: None

PATIENT
  Age: 60 Year
  Sex: Male
  Weight: 84.8226 kg

DRUGS (1)
  1. AMITRIPTYLINE HYDROCHLORIDE [Suspect]
     Indication: DEPRESSION
     Dosage: 150MG 1 @ NIGHT 047
     Route: 048
     Dates: start: 20110820, end: 20110826

REACTIONS (5)
  - SOMNAMBULISM [None]
  - COMPLETED SUICIDE [None]
  - ALTERED STATE OF CONSCIOUSNESS [None]
  - SOMNOLENCE [None]
  - CRYING [None]
